FAERS Safety Report 17127398 (Version 2)
Quarter: 2019Q4

REPORT INFORMATION
  Report Type: Report from Study
  Country: DE (occurrence: DE)
  Receive Date: 20191209
  Receipt Date: 20191210
  Transmission Date: 20200122
  Serious: Yes (Hospitalization, Other)
  Sender: FDA-Public Use
  Company Number: DE-TEVA-2019-DE-1148067

PATIENT
  Age: 56 Year
  Sex: Male
  Weight: 82 kg

DRUGS (25)
  1. VITAMIN B1 [Concomitant]
     Active Substance: THIAMINE HYDROCHLORIDE
     Dosage: 200 MG, UNK
  2. RIBAVIRIN. [Suspect]
     Active Substance: RIBAVIRIN
     Dosage: DAILY DOSE: 1200 MG MILLIGRAM(S) EVERY DAY
     Route: 048
     Dates: start: 20150701, end: 20150922
  3. CANDESARTAN. [Concomitant]
     Active Substance: CANDESARTAN
     Dosage: 4 MG, UNK
     Route: 065
  4. ELIQUIS [Concomitant]
     Active Substance: APIXABAN
     Dosage: 5 MG, BID
     Dates: start: 20150625
  5. CLEXANE [Concomitant]
     Active Substance: ENOXAPARIN SODIUM
     Dosage: UNK MG, UNK
     Route: 065
     Dates: start: 20150701
  6. PANTOZOL [Concomitant]
     Active Substance: PANTOPRAZOLE SODIUM
     Dosage: 40 MG, UNK
     Dates: start: 20160512
  7. NOVODIGAL /00017701/ [Concomitant]
     Active Substance: DIGOXIN
     Dosage: 0.2 MG, UNK
     Route: 065
     Dates: end: 20150708
  8. RIBAVIRIN. [Suspect]
     Active Substance: RIBAVIRIN
     Indication: CHRONIC HEPATITIS C
     Dosage: 600 MG,  UNK
     Route: 048
     Dates: start: 20150730, end: 20150923
  9. VALCYTE [Concomitant]
     Active Substance: VALGANCICLOVIR HYDROCHLORIDE
     Dosage: 900 MG, UNK
     Dates: start: 20160513, end: 20160817
  10. SPIRONOLACTON [Concomitant]
     Active Substance: SPIRONOLACTONE
     Dosage: 100 MG, UNK
     Route: 065
     Dates: start: 20150701
  11. CARVEDILOL. [Concomitant]
     Active Substance: CARVEDILOL
     Dosage: UNK
  12. ENOXAPARIN [Concomitant]
     Active Substance: ENOXAPARIN
  13. TORASEMID [Concomitant]
     Active Substance: TORSEMIDE
     Dosage: 30 UNK, UNK
     Route: 065
  14. BISOPROLOL [Concomitant]
     Active Substance: BISOPROLOL
     Dosage: 5 MG, UNK
     Route: 065
  15. BACTRIM [Concomitant]
     Active Substance: SULFAMETHOXAZOLE\TRIMETHOPRIM
     Dosage: 960 MG, UNK
     Route: 065
     Dates: start: 20160513
  16. TORASEMID [Concomitant]
     Active Substance: TORSEMIDE
     Dosage: 5 MG, UNK
     Route: 065
  17. CETIRIZIN [Concomitant]
     Active Substance: CETIRIZINE HYDROCHLORIDE
     Dosage: UNK
     Route: 065
     Dates: start: 20150713
  18. CARVEDILOL. [Concomitant]
     Active Substance: CARVEDILOL
     Dosage: 37.5 MG, UNK
     Route: 065
  19. LEDIPASVIR/SOFOSBUVIR [Suspect]
     Active Substance: LEDIPASVIR\SOFOSBUVIR
     Indication: CHRONIC HEPATITIS C
     Dosage: 1 DOSAGE FORMS DAILY; DAILY DOSE: 1 DF DOSAGE FORM EVERY DAY
     Route: 048
     Dates: start: 20150701, end: 20150922
  20. ELIQUIS [Concomitant]
     Active Substance: APIXABAN
     Dosage: 5 MILLIGRAM DAILY; DAILY DOSE: 10 MG MILLIGRAM(S) EVERY DAY
     Route: 065
     Dates: start: 20150625
  21. EPLERENON GENERIC [Concomitant]
     Dosage: 50 MG, UNK
     Route: 065
  22. DIGITOXIN [Concomitant]
     Active Substance: DIGITOXIN
     Dosage: 0.2 MG, UNK
     Route: 065
     Dates: start: 20150709
  23. DECOSTRIOL [Concomitant]
     Active Substance: CALCITRIOL
     Dosage: 0.5 MG, UNK
     Route: 065
  24. TORASEMID [Concomitant]
     Active Substance: TORSEMIDE
     Dosage: 30 UNK, UNK
     Route: 065
  25. MAGNESIUM VERLA /00648601/ [Concomitant]
     Active Substance: MAGNESIUM
     Dosage: UNK
     Route: 065
     Dates: start: 20150713

REACTIONS (7)
  - Haematemesis [Unknown]
  - Cardioversion [Unknown]
  - Gout [Recovered/Resolved]
  - Atrial fibrillation [Unknown]
  - Liver transplant [Recovering/Resolving]
  - Hepatocellular carcinoma [Not Recovered/Not Resolved]
  - Oesophageal varices haemorrhage [Recovered/Resolved]

NARRATIVE: CASE EVENT DATE: 2015
